FAERS Safety Report 15483135 (Version 1)
Quarter: 2018Q4

REPORT INFORMATION
  Report Type: Spontaneous
  Country: IT (occurrence: IT)
  Receive Date: 20181010
  Receipt Date: 20181010
  Transmission Date: 20190205
  Serious: Yes (Other)
  Sender: FDA-Public Use
  Company Number: IT-MYLANLABS-2018M1074296

PATIENT
  Age: 36 Year
  Sex: Female

DRUGS (5)
  1. LAMOTRIGINE. [Interacting]
     Active Substance: LAMOTRIGINE
     Indication: GENERALISED TONIC-CLONIC SEIZURE
     Route: 065
  2. CHORIOGONADOTROPIN ALFA [Interacting]
     Active Substance: CHORIOGONADOTROPIN ALFA
     Indication: HORMONE THERAPY
     Dosage: ADMINISTERED AT THE AGE OF 36 YEARS
     Route: 065
  3. GANIRELIX [Interacting]
     Active Substance: GANIRELIX
     Indication: HORMONE THERAPY
     Dosage: ADMINISTERED AT THE AGE OF 36 YEARS
     Route: 065
  4. ESTRADIOL. [Suspect]
     Active Substance: ESTRADIOL
     Indication: IN VITRO FERTILISATION
     Route: 065
  5. FOLLITROPIN ALFA [Interacting]
     Active Substance: FOLLITROPIN
     Indication: HORMONE THERAPY
     Route: 065

REACTIONS (4)
  - Drug level decreased [Unknown]
  - Generalised tonic-clonic seizure [Unknown]
  - Drug interaction [Unknown]
  - Condition aggravated [Unknown]
